FAERS Safety Report 4490001-X (Version None)
Quarter: 2004Q4

REPORT INFORMATION
  Report Type: 
  Country: None (occurrence: None)
  Receive Date: 20041027
  Receipt Date: 20041014
  Transmission Date: 20050328
  Serious: Yes (Hospitalization)
  Sender: FDA-Public Use
  Company Number: 2004058666

PATIENT
  Age: 53 Year
  Sex: Female

DRUGS (10)
  1. LIPITOR [Suspect]
     Indication: HYPERCHOLESTEROLAEMIA
     Dosage: 10 MG 1D, ORAL
     Route: 048
     Dates: start: 20030612, end: 20040723
  2. ACARBOSE (ACARBOSE) [Suspect]
     Indication: DIABETES MELLITUS
     Dosage: 300 MG 1D, ORAL
     Route: 048
     Dates: start: 20030612
  3. TELMISARTAN (TELMISARTAN) [Suspect]
     Indication: HYPERTENSION
     Dosage: 20 MG 1 D, ORAL
     Route: 048
     Dates: start: 20030612
  4. ZYRTEC [Suspect]
     Indication: ILL-DEFINED DISORDER
     Dosage: 1 D, ORAL
     Route: 048
     Dates: end: 20031217
  5. LANSOPRAZOLE [Concomitant]
  6. POLAPREZINC (POLAPREZINC) [Concomitant]
  7. ECABET (ECABET) [Concomitant]
  8. NIZATIDINE [Concomitant]
  9. URSODEOXYCHOLIC ACID (URSODEOXYCHOLIC ACID) [Concomitant]
  10. DRUG, UNSPECIFIED (DRUG, UNSPECIFIED) [Suspect]
     Indication: ILL-DEFINED DISORDER
     Dates: start: 20031216

REACTIONS (8)
  - ALANINE AMINOTRANSFERASE INCREASED [None]
  - ASPARTATE AMINOTRANSFERASE INCREASED [None]
  - BLOOD ALKALINE PHOSPHATASE INCREASED [None]
  - BLOOD LACTATE DEHYDROGENASE INCREASED [None]
  - GAMMA-GLUTAMYLTRANSFERASE INCREASED [None]
  - GASTRIC ULCER [None]
  - HAEMOPTYSIS [None]
  - HEPATIC FUNCTION ABNORMAL [None]
